FAERS Safety Report 8540762-5 (Version None)
Quarter: 2012Q3

REPORT INFORMATION
  Report Type: 
  Country: None (occurrence: None)
  Receive Date: 20120726
  Receipt Date: 20120713
  Transmission Date: 20120928
  Serious: No
  Sender: FDA-Public Use
  Company Number: US-ASTRAZENECA-2012SE48881

PATIENT
  Age: 56 Year
  Sex: Female
  Weight: 59 kg

DRUGS (5)
  1. LEVOTHYROXINE SODIUM [Concomitant]
     Route: 048
  2. VITAMIN TAB [Concomitant]
     Dosage: DAILY
     Route: 048
  3. ALBUTEROL [Concomitant]
     Indication: CHRONIC OBSTRUCTIVE PULMONARY DISEASE
     Route: 055
  4. COMBIVENT [Suspect]
     Route: 055
  5. SYMBICORT [Suspect]
     Indication: CHRONIC OBSTRUCTIVE PULMONARY DISEASE
     Dosage: 320 MCG, BID
     Route: 055
     Dates: start: 20120201, end: 20120712

REACTIONS (7)
  - COUGH [None]
  - FEELING COLD [None]
  - RETCHING [None]
  - WHEEZING [None]
  - DYSPNOEA [None]
  - DYSPHONIA [None]
  - INTENTIONAL DRUG MISUSE [None]
